FAERS Safety Report 15717024 (Version 3)
Quarter: 2019Q1

REPORT INFORMATION
  Report Type: Spontaneous
  Country: US (occurrence: US)
  Receive Date: 20181213
  Receipt Date: 20190122
  Transmission Date: 20190417
  Serious: Yes (Other)
  Sender: FDA-Public Use
  Company Number: US-PFIZER INC-2018505976

PATIENT
  Age: 66 Year
  Sex: Male
  Weight: 86.17 kg

DRUGS (4)
  1. TESTOSTERONE CIPIONATE [Suspect]
     Active Substance: TESTOSTERONE
     Dosage: UNK UNK, WEEKLY [1 OIL; DIRECTED EVERY WEEK]
     Route: 030
  2. TESTOSTERONE CIPIONATE [Suspect]
     Active Substance: TESTOSTERONE
     Indication: HYPOGONADISM
     Dosage: 0.5 ML, WEEKLY
     Route: 030
     Dates: start: 20180818
  3. TESTOSTERONE CIPIONATE [Suspect]
     Active Substance: TESTOSTERONE
     Indication: BENIGN PROSTATIC HYPERPLASIA
     Dosage: UNK UNK, WEEKLY [0.35]
     Route: 030
  4. TESTOSTERONE CIPIONATE [Suspect]
     Active Substance: TESTOSTERONE
     Indication: NOCTURIA
     Dosage: UNK  [1 KIT AS DIRECTED]
     Route: 030

REACTIONS (3)
  - Irritability [Unknown]
  - Nocturia [Unknown]
  - Headache [Recovered/Resolved]
